FAERS Safety Report 25798978 (Version 1)
Quarter: 2025Q3

REPORT INFORMATION
  Report Type: Spontaneous
  Country: US (occurrence: US)
  Receive Date: 20250913
  Receipt Date: 20250913
  Transmission Date: 20251021
  Serious: Yes (Life-Threatening, Hospitalization, Other)
  Sender: AUROBINDO
  Company Number: US-MLMSERVICE-20250822-PI620760-00252-1

PATIENT
  Age: 75 Year
  Sex: Male

DRUGS (16)
  1. OXYCODONE [Suspect]
     Active Substance: OXYCODONE
     Indication: Product used for unknown indication
     Route: 065
  2. PREDNISONE [Suspect]
     Active Substance: PREDNISONE
     Indication: Hypoxia
     Route: 048
  3. PREDNISONE [Suspect]
     Active Substance: PREDNISONE
     Indication: Cough
  4. PREDNISONE [Suspect]
     Active Substance: PREDNISONE
     Indication: Dyspnoea
  5. PREDNISONE [Suspect]
     Active Substance: PREDNISONE
     Indication: Haemophilus infection
  6. PREDNISONE [Suspect]
     Active Substance: PREDNISONE
     Indication: Aspergillus infection
  7. DUPILUMAB [Concomitant]
     Active Substance: DUPILUMAB
     Indication: Bronchopulmonary aspergillosis allergic
     Route: 065
  8. LEVOFLOXACIN [Concomitant]
     Active Substance: LEVOFLOXACIN
     Indication: Haemophilus infection
     Route: 065
  9. SULFAMETHOXAZOLE\TRIMETHOPRIM [Concomitant]
     Active Substance: SULFAMETHOXAZOLE\TRIMETHOPRIM
     Indication: Aspergillus infection
     Dosage: UNK, ONCE A DAY
     Route: 048
  10. ALBUTEROL [Concomitant]
     Active Substance: ALBUTEROL
     Indication: Aspergillus infection
  11. FLUTICASONE FUROATE\VILANTEROL TRIFENATATE [Concomitant]
     Active Substance: FLUTICASONE FUROATE\VILANTEROL TRIFENATATE
     Indication: Product used for unknown indication
  12. CETIRIZINE [Concomitant]
     Active Substance: CETIRIZINE HYDROCHLORIDE
     Indication: Product used for unknown indication
     Route: 065
  13. MONTELUKAST [Concomitant]
     Active Substance: MONTELUKAST
     Indication: Product used for unknown indication
     Route: 065
  14. OMEPRAZOLE [Concomitant]
     Active Substance: OMEPRAZOLE
     Indication: Product used for unknown indication
     Route: 065
  15. SUMATRIPTAN [Concomitant]
     Active Substance: SUMATRIPTAN
     Indication: Product used for unknown indication
     Route: 065
  16. ALENDRONATE [Concomitant]
     Active Substance: ALENDRONATE SODIUM
     Indication: Product used for unknown indication
     Route: 065

REACTIONS (6)
  - Respiratory failure [Recovering/Resolving]
  - Nocardiosis [Recovering/Resolving]
  - Mycobacterium abscessus infection [Recovering/Resolving]
  - Brain abscess [Unknown]
  - Infectious pleural effusion [Recovered/Resolved]
  - Nausea [Unknown]
